FAERS Safety Report 19099455 (Version 1)
Quarter: 2021Q2

REPORT INFORMATION
  Report Type: Spontaneous
  Country: NO (occurrence: NO)
  Receive Date: 20210407
  Receipt Date: 20210407
  Transmission Date: 20210717
  Serious: Yes (Death, Other)
  Sender: FDA-Public Use
  Company Number: NO-BRISTOL-MYERS SQUIBB COMPANY-BMS-2021-032013

PATIENT
  Age: 91 Year
  Sex: Male

DRUGS (3)
  1. COVID?19 VACCINE NOS. [Interacting]
     Active Substance: COVID-19 VACCINE NOS
     Indication: IMMUNISATION
     Dosage: DOSE NO. IN SERIES: 2
     Route: 030
     Dates: start: 20210225
  2. ELIQUIS [Suspect]
     Active Substance: APIXABAN
     Indication: CEREBROVASCULAR ACCIDENT PROPHYLAXIS
     Dosage: 2.5 MILLIGRAM
     Route: 065
     Dates: end: 20210324
  3. EXFORGE HCT [Concomitant]
     Active Substance: AMLODIPINE BESYLATE\HYDROCHLOROTHIAZIDE\VALSARTAN
     Indication: PRODUCT USED FOR UNKNOWN INDICATION
     Route: 048
     Dates: end: 20210324

REACTIONS (7)
  - Drug ineffective [Fatal]
  - Dizziness [Fatal]
  - Pneumonia aspiration [Fatal]
  - Cerebrovascular accident [Fatal]
  - Cerebral infarction [Fatal]
  - Drug interaction [Unknown]
  - Aphasia [Fatal]

NARRATIVE: CASE EVENT DATE: 20210310
